FAERS Safety Report 7129516-4 (Version None)
Quarter: 2010Q4

REPORT INFORMATION
  Report Type: 
  Country: None (occurrence: None)
  Receive Date: 20101130
  Receipt Date: 20101116
  Transmission Date: 20110411
  Serious: Yes (Other)
  Sender: FDA-Public Use
  Company Number: JP-ASTRAZENECA-2010SE09775

PATIENT
  Sex: Male
  Weight: 112 kg

DRUGS (10)
  1. BLOPRESS PLUS [Suspect]
     Indication: HYPERTENSION
     Route: 048
     Dates: start: 20090728
  2. METOPROLOL [Suspect]
     Indication: HYPERTENSION
     Route: 048
     Dates: start: 20050612
  3. RASILEZ [Suspect]
     Indication: HYPERTENSION
     Route: 048
     Dates: start: 20081211
  4. CARMEN [Suspect]
     Indication: HYPERTENSION
     Route: 048
     Dates: start: 20081207
  5. DIURETICS [Concomitant]
     Route: 065
  6. PLATELETS [Concomitant]
     Route: 065
  7. FUROSEMIDE [Concomitant]
     Route: 048
     Dates: start: 20080403
  8. ACETYLSALICYLIC ACID [Concomitant]
     Route: 048
     Dates: start: 20051116
  9. ALLOPURINOL [Concomitant]
     Route: 048
     Dates: start: 20010115
  10. SIMVASTATIN [Concomitant]
     Route: 048
     Dates: start: 20050712

REACTIONS (2)
  - DIABETES MELLITUS [None]
  - HYPERTENSIVE CRISIS [None]
